FAERS Safety Report 5214954-7 (Version None)
Quarter: 2006Q4

REPORT INFORMATION
  Report Type: 
  Country: None (occurrence: None)
  Receive Date: 20061108
  Receipt Date: 20060807
  Transmission Date: 20070319
  Serious: Yes (Other)
  Sender: FDA-Public Use
  Company Number: US200608001531

PATIENT
  Sex: Female

DRUGS (2)
  1. PROZAC [Suspect]
     Indication: DEPRESSION
     Dosage: 20 MG, ORAL
     Route: 048
     Dates: start: 19960101, end: 19970101
  2. KLONOPIN [Concomitant]

REACTIONS (5)
  - ANIMAL SCRATCH [None]
  - PSYCHOGENIC PAIN DISORDER [None]
  - SCAR [None]
  - SUICIDAL IDEATION [None]
  - WOUND COMPLICATION [None]
